FAERS Safety Report 6702594-X (Version None)
Quarter: 2010Q2

REPORT INFORMATION
  Report Type: 
  Country: None (occurrence: None)
  Receive Date: 20100429
  Receipt Date: 20100426
  Transmission Date: 20101027
  Serious: Yes (Hospitalization)
  Sender: FDA-Public Use
  Company Number: US-ELI_LILLY_AND_COMPANY-US201003007819

PATIENT
  Sex: Female

DRUGS (10)
  1. BYETTA [Suspect]
     Indication: TYPE 2 DIABETES MELLITUS
     Dosage: 5 UG, 2/D
     Dates: start: 20091021, end: 20100122
  2. BYETTA [Suspect]
     Dosage: 10 UG, 2/D
     Dates: start: 20100122
  3. GLIPIZIDE [Concomitant]
     Indication: TYPE 2 DIABETES MELLITUS
     Dosage: 10 MG, EACH MORNING
  4. GLIPIZIDE [Concomitant]
     Dosage: 5 MG, EACH EVENING
  5. ASPIRIN [Concomitant]
     Indication: DIABETES MELLITUS
     Route: 048
  6. SYNTHROID [Concomitant]
     Indication: HYPOTHYROIDISM
     Route: 048
  7. ALLEGRA [Concomitant]
     Indication: HYPERSENSITIVITY
     Route: 048
  8. ALTACE [Concomitant]
     Indication: HYPERTENSION
     Route: 048
  9. MOBIC [Concomitant]
     Indication: OSTEOARTHRITIS
     Route: 048
  10. LEXAPRO [Concomitant]
     Indication: DEPRESSION
     Route: 048

REACTIONS (3)
  - BLOOD GLUCOSE INCREASED [None]
  - INCORRECT DOSE ADMINISTERED [None]
  - ROTATOR CUFF SYNDROME [None]
